FAERS Safety Report 25080076 (Version 1)
Quarter: 2025Q1

REPORT INFORMATION
  Report Type: Spontaneous
  Country: CA (occurrence: CA)
  Receive Date: 20250314
  Receipt Date: 20250314
  Transmission Date: 20250409
  Serious: Yes (Hospitalization, Other)
  Sender: ALEXION PHARMACEUTICALS
  Company Number: None

PATIENT
  Age: 52 Year

DRUGS (73)
  1. SYMBICORT [Suspect]
     Active Substance: BUDESONIDE\FORMOTEROL FUMARATE DIHYDRATE
     Indication: Product used for unknown indication
     Route: 065
  2. SEROQUEL [Suspect]
     Active Substance: QUETIAPINE FUMARATE
     Indication: Product used for unknown indication
     Dosage: 50 MILLIGRAM, QD
  3. BUDESONIDE [Suspect]
     Active Substance: BUDESONIDE
     Indication: Product used for unknown indication
     Route: 065
  4. PREDNISONE [Suspect]
     Active Substance: PREDNISONE
     Indication: Product used for unknown indication
     Route: 065
  5. QUETIAPINE [Suspect]
     Active Substance: QUETIAPINE
     Indication: Psychotic disorder
     Dosage: 50 MILLIGRAM, QD
  6. ACETAMINOPHEN [Suspect]
     Active Substance: ACETAMINOPHEN
     Indication: Pain in extremity
     Route: 065
  7. ACETAMINOPHEN [Suspect]
     Active Substance: ACETAMINOPHEN
  8. ANORO ELLIPTA [Suspect]
     Active Substance: UMECLIDINIUM BROMIDE\VILANTEROL TRIFENATATE
     Indication: Product used for unknown indication
  9. APTIVUS [Suspect]
     Active Substance: TIPRANAVIR
     Indication: HIV infection
     Dosage: 650 MILLIGRAM, QD
  10. APTIVUS [Suspect]
     Active Substance: TIPRANAVIR
     Dosage: 500 MILLIGRAM, QD
  11. ATROVENT [Suspect]
     Active Substance: IPRATROPIUM BROMIDE
     Indication: Product used for unknown indication
     Route: 065
  12. AZITHROMYCIN [Suspect]
     Active Substance: AZITHROMYCIN
     Indication: Product used for unknown indication
     Route: 065
  13. BREO ELLIPTA [Suspect]
     Active Substance: FLUTICASONE FUROATE\VILANTEROL TRIFENATATE
     Indication: Product used for unknown indication
  14. CLONAZEPAM [Suspect]
     Active Substance: CLONAZEPAM
     Indication: Hypomania
     Route: 065
  15. CLONAZEPAM [Suspect]
     Active Substance: CLONAZEPAM
     Dosage: 3 MILLIGRAM, QD
     Route: 065
  16. CLONAZEPAM [Suspect]
     Active Substance: CLONAZEPAM
     Dosage: 30 MILLIGRAM, QD
  17. CLONAZEPAM [Suspect]
     Active Substance: CLONAZEPAM
     Dosage: 3 MILLIGRAM, QD
  18. DIAZEPAM [Suspect]
     Active Substance: DIAZEPAM
     Indication: Depression
     Route: 065
  19. DIAZEPAM [Suspect]
     Active Substance: DIAZEPAM
     Route: 065
  20. DIAZEPAM [Suspect]
     Active Substance: DIAZEPAM
     Indication: Depression
     Dosage: 500 MILLIGRAM, QD
  21. DIAZEPAM [Suspect]
     Active Substance: DIAZEPAM
     Dosage: 250 MILLIGRAM, Q12H
  22. DIAZEPAM [Suspect]
     Active Substance: DIAZEPAM
  23. DIAZEPAM [Suspect]
     Active Substance: DIAZEPAM
     Dosage: 1500 MILLIGRAM, QD
  24. DIAZEPAM [Suspect]
     Active Substance: DIAZEPAM
     Dosage: 250 MILLIGRAM, Q12H
  25. ACLIDINIUM BROMIDE\FORMOTEROL FUMARATE [Suspect]
     Active Substance: ACLIDINIUM BROMIDE\FORMOTEROL FUMARATE
     Indication: Product used for unknown indication
  26. EPIVAL [Suspect]
     Active Substance: DIVALPROEX SODIUM
     Indication: Product used for unknown indication
     Route: 065
  27. EPIVAL [Suspect]
     Active Substance: DIVALPROEX SODIUM
     Dosage: 500 MILLIGRAM, QD
  28. EPIVAL [Suspect]
     Active Substance: DIVALPROEX SODIUM
     Dosage: 1500 MILLIGRAM, QD
  29. FORMOTEROL FUMARATE\MOMETASONE FUROATE [Suspect]
     Active Substance: FORMOTEROL FUMARATE\MOMETASONE FUROATE
     Indication: Product used for unknown indication
     Route: 065
  30. OLODATEROL HYDROCHLORIDE\TIOTROPIUM BROMIDE MONOHYDRATE [Suspect]
     Active Substance: OLODATEROL HYDROCHLORIDE\TIOTROPIUM BROMIDE MONOHYDRATE
     Indication: Product used for unknown indication
  31. MOXIFLOXACIN [Suspect]
     Active Substance: MOXIFLOXACIN
     Indication: Product used for unknown indication
     Route: 065
  32. NASONEX [Suspect]
     Active Substance: MOMETASONE FUROATE
     Indication: Product used for unknown indication
     Route: 065
  33. NUCALA [Suspect]
     Active Substance: MEPOLIZUMAB
     Indication: Product used for unknown indication
  34. OLANZAPINE [Suspect]
     Active Substance: OLANZAPINE
     Indication: Psychotic disorder
     Dosage: 12.5 MILLIGRAM, QD
     Route: 065
  35. OLANZAPINE [Suspect]
     Active Substance: OLANZAPINE
     Indication: Musculoskeletal stiffness
     Dosage: 5 MILLIGRAM, QD
     Route: 065
  36. OLODATEROL HYDROCHLORIDE\TIOTROPIUM BROMIDE MONOHYDRATE [Suspect]
     Active Substance: OLODATEROL HYDROCHLORIDE\TIOTROPIUM BROMIDE MONOHYDRATE
     Indication: Product used for unknown indication
     Route: 065
  37. OMNARIS [Suspect]
     Active Substance: CICLESONIDE
     Indication: Product used for unknown indication
     Route: 065
  38. PROCYCLIDINE HYDROCHLORIDE [Suspect]
     Active Substance: PROCYCLIDINE HYDROCHLORIDE
     Indication: Prophylaxis
     Dosage: 2.5 MILLIGRAM, QD
  39. PROCYCLIDINE HYDROCHLORIDE [Suspect]
     Active Substance: PROCYCLIDINE HYDROCHLORIDE
     Indication: Musculoskeletal stiffness
  40. RISPERIDONE [Suspect]
     Active Substance: RISPERIDONE
     Indication: Psychotic disorder
     Dosage: 3 MILLIGRAM, QD
  41. ALBUTEROL [Suspect]
     Active Substance: ALBUTEROL
     Indication: Product used for unknown indication
     Route: 065
  42. ALBUTEROL SULFATE [Suspect]
     Active Substance: ALBUTEROL SULFATE
     Indication: Product used for unknown indication
     Route: 065
  43. SINGULAIR [Suspect]
     Active Substance: MONTELUKAST SODIUM
     Indication: Product used for unknown indication
     Route: 065
  44. SPIRIVA [Suspect]
     Active Substance: TIOTROPIUM BROMIDE MONOHYDRATE
     Indication: Product used for unknown indication
     Route: 065
  45. TEGRETOL [Suspect]
     Active Substance: CARBAMAZEPINE
     Indication: Hypomania
     Dosage: 200 MILLIGRAM, Q12H
  46. TEGRETOL [Suspect]
     Active Substance: CARBAMAZEPINE
     Dosage: 200 MILLIGRAM, Q12H
     Route: 065
  47. TIOTROPIUM BROMIDE MONOHYDRATE [Suspect]
     Active Substance: TIOTROPIUM BROMIDE MONOHYDRATE
     Indication: Product used for unknown indication
     Route: 065
  48. TIPRANAVIR [Suspect]
     Active Substance: TIPRANAVIR
     Indication: Product used for unknown indication
     Dosage: 500 MILLIGRAM, QD
  49. TRAZODONE [Suspect]
     Active Substance: TRAZODONE HYDROCHLORIDE
     Indication: Depression
     Dosage: 50 MILLIGRAM, QD
  50. TRAZODONE [Suspect]
     Active Substance: TRAZODONE HYDROCHLORIDE
  51. TRAZODONE [Suspect]
     Active Substance: TRAZODONE HYDROCHLORIDE
     Dosage: 50 MILLIGRAM, QD
     Route: 065
  52. DIVALPROEX SODIUM [Suspect]
     Active Substance: DIVALPROEX SODIUM
     Indication: Product used for unknown indication
     Dosage: 2500 MILLIGRAM, QD
  53. DIVALPROEX SODIUM [Suspect]
     Active Substance: DIVALPROEX SODIUM
     Dosage: 2750 MILLIGRAM, QD
     Route: 065
  54. ZENHALE [Suspect]
     Active Substance: FORMOTEROL FUMARATE\MOMETASONE FUROATE
     Indication: Product used for unknown indication
     Route: 065
  55. ZYPREXA [Suspect]
     Active Substance: OLANZAPINE
     Indication: Psychotic disorder
     Dosage: 5 MILLIGRAM, QD
  56. ZYPREXA [Suspect]
     Active Substance: OLANZAPINE
     Dosage: 12.5 MILLIGRAM, QD
  57. LAMIVUDINE [Concomitant]
     Active Substance: LAMIVUDINE
     Route: 065
  58. ABACAVIR [Concomitant]
     Active Substance: ABACAVIR
     Route: 065
  59. ACETAMINOPHEN [Concomitant]
     Active Substance: ACETAMINOPHEN
     Route: 065
  60. ATOVAQUONE\PROGUANIL [Concomitant]
     Active Substance: ATOVAQUONE\PROGUANIL
     Route: 065
  61. BISACODYL [Concomitant]
     Active Substance: BISACODYL
     Route: 065
  62. CALCIUM CARBONATE [Concomitant]
     Active Substance: CALCIUM CARBONATE
     Route: 065
  63. CHLORAL HYDRATE [Concomitant]
     Active Substance: CHLORAL HYDRATE
     Route: 065
  64. DIPHENHYDRAMINE HYDROCHLORIDE [Concomitant]
     Active Substance: DIPHENHYDRAMINE HYDROCHLORIDE
     Route: 065
  65. ACETAMINOPHEN [Concomitant]
     Active Substance: ACETAMINOPHEN
     Route: 065
  66. PHENYLEPHRINE HYDROCHLORIDE [Concomitant]
     Active Substance: PHENYLEPHRINE HYDROCHLORIDE
     Route: 065
  67. IMODIUM [Concomitant]
     Active Substance: LOPERAMIDE HYDROCHLORIDE
     Route: 065
  68. KALETRA [Concomitant]
     Active Substance: LOPINAVIR\RITONAVIR
     Route: 065
  69. LACTULOSE [Concomitant]
     Active Substance: LACTULOSE
     Route: 065
  70. LITHIUM [Concomitant]
     Active Substance: LITHIUM
     Route: 065
  71. NYSTATIN [Concomitant]
     Active Substance: NYSTATIN
     Route: 065
  72. SERTRALINE [Concomitant]
     Active Substance: SERTRALINE HYDROCHLORIDE
     Route: 065
  73. ENFUVIRTIDE [Concomitant]
     Active Substance: ENFUVIRTIDE
     Route: 065

REACTIONS (25)
  - Asthma-chronic obstructive pulmonary disease overlap syndrome [Recovered/Resolved]
  - Blood bilirubin increased [Recovered/Resolved]
  - Bronchiectasis [Recovered/Resolved]
  - Cardiac murmur [Recovered/Resolved]
  - Cholelithiasis [Recovered/Resolved]
  - Chronic obstructive pulmonary disease [Recovered/Resolved]
  - Condition aggravated [Recovered/Resolved]
  - Gastrooesophageal reflux disease [Recovered/Resolved]
  - Hepatic enzyme increased [Recovered/Resolved]
  - Hepatotoxicity [Recovered/Resolved]
  - Hypomania [Recovered/Resolved]
  - Jaundice cholestatic [Recovered/Resolved]
  - Lung neoplasm malignant [Recovered/Resolved]
  - Nasal polyps [Recovered/Resolved]
  - Nausea [Recovered/Resolved]
  - Oedema peripheral [Recovered/Resolved]
  - Off label use [Recovered/Resolved]
  - Pneumonia [Recovered/Resolved]
  - Psychotic disorder [Recovered/Resolved]
  - Rhinitis allergic [Recovered/Resolved]
  - Sarcoidosis [Recovered/Resolved]
  - Schizophrenia [Recovered/Resolved]
  - Total lung capacity increased [Recovered/Resolved]
  - Vomiting [Recovered/Resolved]
  - Wheezing [Recovered/Resolved]
